FAERS Safety Report 15126622 (Version 3)
Quarter: 2018Q3

REPORT INFORMATION
  Report Type: Spontaneous
  Country: US (occurrence: US)
  Receive Date: 20180710
  Receipt Date: 20180806
  Transmission Date: 20181010
  Serious: Yes (Hospitalization, Disabling)
  Sender: FDA-Public Use
  Company Number: US-PFIZER INC-2018194166

PATIENT
  Age: 39 Year
  Sex: Female
  Weight: 54.42 kg

DRUGS (3)
  1. CHAPSTICK CLASSIC ORIGINAL [Suspect]
     Active Substance: PETROLATUM
     Indication: LIP DISORDER
     Dosage: 20 MG, UNK (ALL THE TIME)
     Dates: start: 201801, end: 20180402
  2. CHAPSTICK CLASSIC ORIGINAL [Suspect]
     Active Substance: PETROLATUM
     Indication: LIP DRY
  3. CHAPSTICK CLASSIC ORIGINAL [Suspect]
     Active Substance: PETROLATUM
     Indication: CHAPPED LIPS

REACTIONS (6)
  - Product physical issue [Recovered/Resolved]
  - Chapped lips [Recovered/Resolved]
  - Condition aggravated [Recovered/Resolved]
  - Lip pain [Recovered/Resolved]
  - Eating disorder [Unknown]
  - Drug ineffective [Recovered/Resolved]

NARRATIVE: CASE EVENT DATE: 2018
